FAERS Safety Report 7258989-1 (Version None)
Quarter: 2011Q1

REPORT INFORMATION
  Report Type: 
  Country: None (occurrence: None)
  Receive Date: 20110129
  Receipt Date: 20100622
  Transmission Date: 20110831
  Serious: No
  Sender: FDA-Public Use
  Company Number: US-ABBOTT-10P-163-0653238-00

PATIENT
  Sex: Female

DRUGS (7)
  1. HUMIRA [Suspect]
     Indication: CROHN'S DISEASE
     Dates: start: 20100303
  2. SYNTHROID [Concomitant]
     Indication: HYPOTHYROIDISM
  3. COLAZAL [Concomitant]
     Indication: CROHN'S DISEASE
  4. METOPROLOL [Concomitant]
     Indication: HYPERTENSION
  5. ISRADINE [Concomitant]
     Indication: HYPERTENSION
  6. HYDROCHLOROTHIAZIDE [Concomitant]
     Indication: HYPERTENSION
  7. MULTIVITAMIN W/VITAMIN C [Concomitant]
     Indication: VITAMIN SUPPLEMENTATION

REACTIONS (1)
  - NASOPHARYNGITIS [None]
